FAERS Safety Report 5688882-7 (Version None)
Quarter: 2008Q1

REPORT INFORMATION
  Report Type: 
  Country: None (occurrence: None)
  Receive Date: 20080328
  Receipt Date: 20080328
  Transmission Date: 20080703
  Serious: Yes (Other)
  Sender: FDA-Public Use
  Company Number: None

PATIENT
  Sex: Female
  Weight: 80.7403 kg

DRUGS (3)
  1. TRI NESSA (28) .18/.213/.25-35MG-MCG [Suspect]
     Indication: DYSMENORRHOEA
     Dosage: 1 TAB EVERY DAY ORAL
     Route: 048
  2. TRI NESSA (28) .18/.213/.25-35MG-MCG [Suspect]
     Indication: MIGRAINE
     Dosage: 1 TAB EVERY DAY ORAL
     Route: 048
  3. TRI NESSA (28) .18/.213/.25-35MG-MCG [Suspect]
     Indication: NAUSEA
     Dosage: 1 TAB EVERY DAY ORAL
     Route: 048

REACTIONS (3)
  - MIGRAINE [None]
  - NAUSEA [None]
  - NO THERAPEUTIC RESPONSE [None]
